FAERS Safety Report 21297625 (Version 3)
Quarter: 2022Q4

REPORT INFORMATION
  Report Type: Spontaneous
  Country: US (occurrence: US)
  Receive Date: 20220906
  Receipt Date: 20221124
  Transmission Date: 20230113
  Serious: Yes (Hospitalization, Other)
  Sender: FDA-Public Use
  Company Number: US-PFIZER INC-PV202200056057

PATIENT
  Age: 53 Year
  Sex: Male

DRUGS (2)
  1. XELJANZ [Suspect]
     Active Substance: TOFACITINIB CITRATE
     Indication: Colitis ulcerative
     Dosage: 20 MG, 1X/DAY (TWO 10MG TABLETS ONCE DAILY)
     Route: 048
     Dates: start: 201901
  2. XELJANZ [Suspect]
     Active Substance: TOFACITINIB CITRATE
     Dosage: 10 MG, 2X/DAY
     Route: 048
     Dates: start: 202101

REACTIONS (13)
  - Fall [Unknown]
  - Head injury [Unknown]
  - Haematochezia [Unknown]
  - Drug ineffective [Unknown]
  - Product dose omission issue [Unknown]
  - Intentional product misuse [Unknown]
  - Anaemia [Unknown]
  - Vitiligo [Unknown]
  - Pollakiuria [Unknown]
  - Micturition urgency [Unknown]
  - Pain in extremity [Unknown]
  - Frequent bowel movements [Unknown]
  - Condition aggravated [Unknown]

NARRATIVE: CASE EVENT DATE: 20200301
